FAERS Safety Report 20455090 (Version 1)
Quarter: 2022Q1

REPORT INFORMATION
  Report Type: Report from Study
  Country: JP (occurrence: JP)
  Receive Date: 20220210
  Receipt Date: 20220210
  Transmission Date: 20220423
  Serious: Yes (Other)
  Sender: FDA-Public Use
  Company Number: JP-RECORDATI RARE DISEASE INC.-2022000437

PATIENT
  Age: 0 Year
  Sex: Male
  Weight: 1.765 kg

DRUGS (13)
  1. NEOPROFEN [Suspect]
     Active Substance: IBUPROFEN LYSINE
     Indication: Patent ductus arteriosus
     Dosage: 16 MILLIGRAM
     Route: 042
     Dates: start: 20210825, end: 20210825
  2. NEOPROFEN [Suspect]
     Active Substance: IBUPROFEN LYSINE
     Dosage: 8 MILLIGRAM
     Route: 042
     Dates: start: 20210826, end: 20210826
  3. NEOPROFEN [Suspect]
     Active Substance: IBUPROFEN LYSINE
     Dosage: 8 MILLIGRAM
     Route: 042
     Dates: start: 20210827, end: 20210827
  4. CAFFEINE [Concomitant]
     Active Substance: CAFFEINE
     Indication: Apnoeic attack
     Dosage: UNK
     Route: 048
     Dates: start: 20210813, end: 20210825
  5. FERRIC PYROPHOSPHATE [Concomitant]
     Active Substance: FERRIC PYROPHOSPHATE
     Indication: Anaemia neonatal
     Dosage: UNK
     Route: 048
     Dates: start: 20210818, end: 20210902
  6. FUROSEMIDE [Concomitant]
     Active Substance: FUROSEMIDE
     Indication: Ventricular septal defect
     Dosage: UNK
     Route: 048
     Dates: start: 20210810, end: 20210922
  7. FUROSEMIDE [Concomitant]
     Active Substance: FUROSEMIDE
     Indication: Cardiac failure congestive
  8. SPIRONOLACTONE [Concomitant]
     Active Substance: SPIRONOLACTONE
     Indication: Ventricular septal defect
     Dosage: UNK
     Route: 048
     Dates: start: 20210822, end: 20210922
  9. SPIRONOLACTONE [Concomitant]
     Active Substance: SPIRONOLACTONE
     Indication: Cardiac failure congestive
  10. PANVITAN [VITAMINS NOS] [Concomitant]
     Indication: Hypovitaminosis
     Dosage: UNK
     Route: 048
     Dates: start: 20210822, end: 20210922
  11. GASTER [Concomitant]
     Active Substance: FAMOTIDINE
     Indication: Gastric mucosal lesion
     Dosage: UNK
     Route: 048
     Dates: start: 20210822, end: 20210922
  12. POTASSIUM GLUCONATE [Concomitant]
     Active Substance: POTASSIUM GLUCONATE
     Indication: Hypokalaemia
     Dosage: UNK
     Route: 048
     Dates: start: 20210824, end: 20210922
  13. ATROPINE [Concomitant]
     Active Substance: ATROPINE
     Indication: Premedication
     Route: 042

REACTIONS (1)
  - Atrial flutter [Recovered/Resolved]

NARRATIVE: CASE EVENT DATE: 20210825
